FAERS Safety Report 9283233 (Version 1)
Quarter: 2013Q2

REPORT INFORMATION
  Report Type: Spontaneous
  Country: US (occurrence: US)
  Receive Date: 20130510
  Receipt Date: 20130510
  Transmission Date: 20140414
  Serious: No
  Sender: FDA-Public Use
  Company Number: US-GLAXOSMITHKLINE-A0990574A

PATIENT
  Age: 68 Year
  Sex: Female

DRUGS (6)
  1. TYKERB [Suspect]
     Indication: BREAST CANCER RECURRENT
     Dosage: 1000MG PER DAY
     Route: 048
     Dates: start: 20120813, end: 20120822
  2. HERCEPTIN [Concomitant]
  3. LYRICA [Concomitant]
  4. THYROID MEDICATION [Concomitant]
  5. ADVIL [Concomitant]
  6. TYLENOL [Concomitant]

REACTIONS (3)
  - Diarrhoea [Not Recovered/Not Resolved]
  - Flatulence [Unknown]
  - Abdominal distension [Unknown]
